FAERS Safety Report 8616950-6 (Version None)
Quarter: 2012Q3

REPORT INFORMATION
  Report Type: 
  Country: None (occurrence: None)
  Receive Date: 20120823
  Receipt Date: 20120812
  Transmission Date: 20120928
  Serious: No
  Sender: FDA-Public Use
  Company Number: US-009507513-1207USA005352

PATIENT

DRUGS (5)
  1. PEGASYS [Suspect]
  2. NEXIUM [Concomitant]
  3. ADVIL [Concomitant]
  4. VICTRELIS [Suspect]
     Indication: HEPATITIS C
     Dosage: 800 MG, TID
     Route: 048
     Dates: start: 20120601
  5. RIBAVIRIN [Suspect]

REACTIONS (3)
  - GASTROOESOPHAGEAL REFLUX DISEASE [None]
  - SECRETION DISCHARGE [None]
  - COUGH [None]
